FAERS Safety Report 12179844 (Version 22)
Quarter: 2018Q2

REPORT INFORMATION
  Report Type: Report from Study
  Country: CA (occurrence: CA)
  Receive Date: 20160315
  Receipt Date: 20180628
  Transmission Date: 20180711
  Serious: Yes (Other)
  Sender: FDA-Public Use
  Company Number: CA-ROCHE-1725816

PATIENT
  Age: 69 Year
  Sex: Female

DRUGS (14)
  1. SULFATRIM [Concomitant]
     Active Substance: SULFAMETHOXAZOLE\TRIMETHOPRIM
  2. ACTEMRA [Suspect]
     Active Substance: TOCILIZUMAB
     Indication: TEMPORAL ARTERITIS
     Route: 042
     Dates: start: 20160203
  3. RISEDRONATE [Concomitant]
     Active Substance: RISEDRONATE SODIUM
  4. TYLENOL [Concomitant]
     Active Substance: ACETAMINOPHEN
  5. ACTEMRA [Suspect]
     Active Substance: TOCILIZUMAB
     Route: 042
     Dates: start: 20160303
  6. METHOTREXATE. [Concomitant]
     Active Substance: METHOTREXATE
  7. VALTRAX [Concomitant]
  8. PREDNISONE. [Concomitant]
     Active Substance: PREDNISONE
  9. ASA [Concomitant]
     Active Substance: ASPIRIN
  10. PANTOLOC [Concomitant]
     Active Substance: PANTOPRAZOLE SODIUM
  11. FOLIC ACID. [Concomitant]
     Active Substance: FOLIC ACID
  12. CA ACETAT [Concomitant]
  13. AMLODIPINE [Concomitant]
     Active Substance: AMLODIPINE BESYLATE
  14. ATIVAN [Concomitant]
     Active Substance: LORAZEPAM

REACTIONS (25)
  - Pneumonia [Recovered/Resolved]
  - Limb injury [Recovered/Resolved]
  - Bursitis [Not Recovered/Not Resolved]
  - Oral herpes [Recovering/Resolving]
  - Blood cholesterol increased [Unknown]
  - Myalgia [Not Recovered/Not Resolved]
  - Bronchitis [Not Recovered/Not Resolved]
  - Nausea [Not Recovered/Not Resolved]
  - Nasopharyngitis [Recovered/Resolved]
  - Oxygen saturation decreased [Unknown]
  - Arthralgia [Not Recovered/Not Resolved]
  - Hepatic enzyme increased [Not Recovered/Not Resolved]
  - Abdominal pain [Not Recovered/Not Resolved]
  - Diarrhoea [Recovering/Resolving]
  - Gait disturbance [Not Recovered/Not Resolved]
  - Nausea [Not Recovered/Not Resolved]
  - Cough [Recovered/Resolved]
  - Diarrhoea haemorrhagic [Recovered/Resolved]
  - Renal pain [Not Recovered/Not Resolved]
  - Headache [Unknown]
  - Back pain [Unknown]
  - Infected skin ulcer [Recovered/Resolved]
  - Fatigue [Not Recovered/Not Resolved]
  - Depression [Recovering/Resolving]
  - Sinusitis [Not Recovered/Not Resolved]

NARRATIVE: CASE EVENT DATE: 201603
